FAERS Safety Report 13865781 (Version 1)
Quarter: 2017Q3

REPORT INFORMATION
  Report Type: Spontaneous
  Country: US (occurrence: US)
  Receive Date: 20170814
  Receipt Date: 20170814
  Transmission Date: 20171127
  Serious: Yes (Other)
  Sender: FDA-Public Use
  Company Number: US-ROCHE-661909

PATIENT
  Age: 16 Year
  Sex: Male
  Weight: 147 kg

DRUGS (3)
  1. TAMIFLU [Suspect]
     Active Substance: OSELTAMIVIR PHOSPHATE
     Indication: VIRAL INFECTION
     Route: 048
     Dates: start: 20090710, end: 20090810
  2. VITAMIN B [Concomitant]
     Active Substance: VITAMIN B
     Dosage: FREQUENCY: DAILY
     Route: 065
  3. VITAMIN C [Concomitant]
     Active Substance: ASCORBIC ACID
     Dosage: FREQENCY: DAILY
     Route: 065

REACTIONS (2)
  - Mental disorder [Recovered/Resolved]
  - Pyrexia [Not Recovered/Not Resolved]

NARRATIVE: CASE EVENT DATE: 20090810
